FAERS Safety Report 6017392-2 (Version None)
Quarter: 2008Q4

REPORT INFORMATION
  Report Type: 
  Country: None (occurrence: None)
  Receive Date: 20081223
  Receipt Date: 20081215
  Transmission Date: 20090506
  Serious: Yes (Other)
  Sender: FDA-Public Use
  Company Number: PHHY2008BR31888

PATIENT
  Age: 79 Year
  Sex: Female
  Weight: 80 kg

DRUGS (1)
  1. EXELON [Suspect]
     Indication: DEMENTIA ALZHEIMER'S TYPE
     Dosage: 10 MG, QD
     Route: 048

REACTIONS (2)
  - ABDOMINAL PAIN UPPER [None]
  - DYSENTERY [None]
